FAERS Safety Report 6220617-1 (Version None)
Quarter: 2009Q2

REPORT INFORMATION
  Report Type: 
  Country: None (occurrence: None)
  Receive Date: 20090610
  Receipt Date: 20090602
  Transmission Date: 20091009
  Serious: Yes (Hospitalization)
  Sender: FDA-Public Use
  Company Number: US-BIOGENIDEC-2009BI009964

PATIENT
  Age: 66 Year
  Sex: Female

DRUGS (5)
  1. TYSABRI [Suspect]
     Indication: MULTIPLE SCLEROSIS
     Route: 042
     Dates: start: 20080807
  2. FOSAMAX [Concomitant]
     Route: 048
  3. KLONOPIN [Concomitant]
     Route: 048
  4. NEURONTIN [Concomitant]
     Route: 048
  5. LASIX [Concomitant]
     Route: 048

REACTIONS (6)
  - ABASIA [None]
  - CITROBACTER INFECTION [None]
  - CONTUSION [None]
  - FALL [None]
  - MULTIPLE SCLEROSIS RELAPSE [None]
  - URINARY TRACT INFECTION [None]
